FAERS Safety Report 8924295 (Version 1)
Quarter: 2012Q4

REPORT INFORMATION
  Report Type: 
  Country: US (occurrence: US)
  Receive Date: 20121126
  Receipt Date: 20121126
  Transmission Date: 20130627
  Serious: Yes (Hospitalization)
  Sender: FDA-Public Use
  Company Number: US-ROXANE LABORATORIES, INC.-2012-RO-02437RO

PATIENT
  Age: 76 Year

DRUGS (5)
  1. PREDNISONE [Suspect]
  2. CYCLOPHOSPHAMIDE TABLETS USP [Suspect]
  3. RITUXIMAB [Suspect]
  4. DOXORUBICIN [Suspect]
  5. VINCRISTINE SULFATE [Suspect]

REACTIONS (1)
  - Deep vein thrombosis [Unknown]
